FAERS Safety Report 8927342 (Version 1)
Quarter: 2012Q4

REPORT INFORMATION
  Report Type: 
  Country: GB (occurrence: GB)
  Receive Date: 20121127
  Receipt Date: 20121127
  Transmission Date: 20130627
  Serious: Yes (Disabling)
  Sender: FDA-Public Use
  Company Number: GB-ROCHE-1157898

PATIENT
  Age: 70 Year
  Sex: Female
  Weight: 58 kg

DRUGS (11)
  1. GANCICLOVIR [Suspect]
     Indication: PNEUMONIA CYTOMEGALOVIRAL
     Route: 042
     Dates: start: 20121005
  2. BISOPROLOL [Concomitant]
  3. DALTEPARIN [Concomitant]
  4. DENOSUMAB [Concomitant]
  5. IMMUNOGLOBULIN [Concomitant]
  6. LEVOFLOXACIN [Concomitant]
  7. OMEPRAZOLE [Concomitant]
  8. OXYGEN [Concomitant]
  9. PARACETAMOL [Concomitant]
  10. PREDNISOLONE [Concomitant]
  11. ZOPICLONE [Concomitant]

REACTIONS (1)
  - Peroneal nerve palsy [Not Recovered/Not Resolved]
